FAERS Safety Report 16591331 (Version 1)
Quarter: 2019Q3

REPORT INFORMATION
  Report Type: Spontaneous
  Country: US (occurrence: US)
  Receive Date: 20190605
  Receipt Date: 20190605
  Transmission Date: 20191004
  Serious: No
  Sender: FDA-Public Use
  Company Number: None

PATIENT
  Age: 76 Year
  Sex: Male

DRUGS (1)
  1. COSENTYX [Suspect]
     Active Substance: SECUKINUMAB
     Dates: start: 201706

REACTIONS (4)
  - Decreased appetite [None]
  - Abdominal pain upper [None]
  - Constipation [None]
  - Pain [None]

NARRATIVE: CASE EVENT DATE: 20190605
